FAERS Safety Report 6468470-5 (Version None)
Quarter: 2009Q4

REPORT INFORMATION
  Report Type: 
  Country: None (occurrence: None)
  Receive Date: 20091130
  Receipt Date: 20091112
  Transmission Date: 20100525
  Serious: Yes (Death)
  Sender: FDA-Public Use
  Company Number: 8054725

PATIENT
  Age: 66 Year
  Sex: Male

DRUGS (2)
  1. PREDNISOLONE [Suspect]
     Indication: PACHYMENINGITIS
  2. AZATHIOPRINE [Suspect]
     Indication: PACHYMENINGITIS

REACTIONS (1)
  - NOCARDIOSIS [None]
